FAERS Safety Report 5299377-7 (Version None)
Quarter: 2007Q2

REPORT INFORMATION
  Report Type: 
  Country: None (occurrence: None)
  Receive Date: 20070417
  Receipt Date: 20070413
  Transmission Date: 20071010
  Serious: Yes (Other)
  Sender: FDA-Public Use
  Company Number: 2007UW00154

PATIENT
  Age: 35 Year
  Sex: Female
  Weight: 118.2 kg

DRUGS (6)
  1. CRESTOR [Suspect]
     Indication: BLOOD CHOLESTEROL INCREASED
     Route: 048
     Dates: start: 20020101, end: 20070101
  2. LIPITOR [Concomitant]
  3. ATENOLOL [Concomitant]
     Indication: BLOOD PRESSURE
     Route: 048
     Dates: start: 20020101
  4. HYDROCORT [Concomitant]
     Indication: BLOOD PRESSURE
     Route: 048
     Dates: start: 20070101
  5. CITALOPRAM HYDROBROMIDE [Concomitant]
     Route: 048
     Dates: start: 20020101
  6. NABUMETONE [Concomitant]
     Indication: PAIN
     Route: 048
     Dates: start: 20070101

REACTIONS (8)
  - ARTHRITIS [None]
  - ASTHENIA [None]
  - FEELING OF DESPAIR [None]
  - MUSCLE DISORDER [None]
  - MUSCULOSKELETAL PAIN [None]
  - MYALGIA [None]
  - PELVIC PAIN [None]
  - SCIATICA [None]
